FAERS Safety Report 7291928-6 (Version None)
Quarter: 2011Q1

REPORT INFORMATION
  Report Type: 
  Country: None (occurrence: None)
  Receive Date: 20110214
  Receipt Date: 20110211
  Transmission Date: 20110831
  Serious: Yes (Death, Hospitalization, Other)
  Sender: FDA-Public Use
  Company Number: US-ABBOTT-11P-163-0704327-00

PATIENT
  Sex: Male
  Weight: 86.26 kg

DRUGS (3)
  1. HUMIRA [Suspect]
     Indication: CROHN'S DISEASE
     Route: 058
     Dates: start: 20090101, end: 20110116
  2. UNKNOWN MEDICATIONS [Concomitant]
     Indication: SCHIZOPHRENIA
     Dates: end: 20110116
  3. UNKNOWN MEDICATIONS [Concomitant]
     Indication: PRODUCT USED FOR UNKNOWN INDICATION
     Dates: end: 20110116

REACTIONS (5)
  - CROHN'S DISEASE [None]
  - TOXICITY TO VARIOUS AGENTS [None]
  - GASTROINTESTINAL OEDEMA [None]
  - INTESTINAL OBSTRUCTION [None]
  - WEIGHT INCREASED [None]
